FAERS Safety Report 23605410 (Version 1)
Quarter: 2024Q1

REPORT INFORMATION
  Report Type: Spontaneous
  Country: US (occurrence: None)
  Receive Date: 20240306
  Receipt Date: 20240306
  Transmission Date: 20240410
  Serious: Yes (unspecified)
  Sender: FDA-Public Use
  Company Number: None

PATIENT
  Age: 26 Year
  Sex: Female
  Weight: 55.34 kg

DRUGS (1)
  1. RITUXAN [Suspect]
     Active Substance: RITUXIMAB
     Indication: Lupus nephritis
     Dosage: ??1000MG DAY 0 REPEAT 2 WEEKS IN
     Route: 042

REACTIONS (2)
  - Nausea [None]
  - Urticaria [None]

NARRATIVE: CASE EVENT DATE: 20240306
